FAERS Safety Report 5755779-3 (Version None)
Quarter: 2008Q2

REPORT INFORMATION
  Report Type: 
  Country: None (occurrence: None)
  Receive Date: 20080602
  Receipt Date: 20080519
  Transmission Date: 20081010
  Serious: Yes (Disabling, Other)
  Sender: FDA-Public Use
  Company Number: PHBS2008BR02618

PATIENT
  Sex: Female
  Weight: 69 kg

DRUGS (5)
  1. ZELMAC [Suspect]
     Indication: CONSTIPATION
     Dosage: UNK
     Dates: start: 20060101
  2. ZELMAC [Suspect]
     Indication: ABDOMINAL PAIN
  3. BROMAZEPAM [Concomitant]
     Indication: ABDOMINAL PAIN
     Dosage: 0.5 TAB/DAY
     Route: 048
     Dates: start: 19920101
  4. BROMAZEPAM [Concomitant]
     Dosage: 2 TO 3 TAB/DAY
     Route: 048
  5. METFORMIN HCL [Concomitant]
     Indication: DIABETES MELLITUS
     Dosage: 1 DF, BID
     Dates: start: 20040101

REACTIONS (2)
  - ABDOMINAL PAIN [None]
  - DIARRHOEA [None]
